FAERS Safety Report 6738428-7 (Version None)
Quarter: 2010Q2

REPORT INFORMATION
  Report Type: 
  Country: None (occurrence: None)
  Receive Date: 20100520
  Receipt Date: 20100518
  Transmission Date: 20101027
  Serious: Yes (Other)
  Sender: FDA-Public Use
  Company Number: SP02926

PATIENT
  Age: 58 Year
  Sex: Female

DRUGS (1)
  1. MOVIPREP [Suspect]
     Indication: COLONOSCOPY
     Dosage: ORAL
     Route: 048
     Dates: start: 20100111, end: 20100111

REACTIONS (4)
  - RASH ERYTHEMATOUS [None]
  - SPEECH DISORDER [None]
  - SWELLING [None]
  - SWELLING FACE [None]
